FAERS Safety Report 4763620-0 (Version None)
Quarter: 2005Q3

REPORT INFORMATION
  Report Type: 
  Country: None (occurrence: None)
  Receive Date: 20050908
  Receipt Date: 20050824
  Transmission Date: 20060218
  Serious: Yes (Death)
  Sender: FDA-Public Use
  Company Number: PHHO2005SE13308

PATIENT
  Age: 58 Year
  Sex: Female

DRUGS (1)
  1. SANDIMMUNE [Suspect]
     Indication: LUNG TRANSPLANT
     Route: 048
     Dates: start: 20050510

REACTIONS (1)
  - ASPERGILLOSIS [None]
